FAERS Safety Report 4351345-5 (Version None)
Quarter: 2004Q2

REPORT INFORMATION
  Report Type: 
  Country: None (occurrence: None)
  Receive Date: 20040503
  Receipt Date: 20040421
  Transmission Date: 20050107
  Serious: Yes (Death, Hospitalization, Disabling)
  Sender: FDA-Public Use
  Company Number: JP-BRISTOL-MYERS SQUIBB COMPANY-12567285

PATIENT
  Age: 74 Year
  Sex: Male

DRUGS (4)
  1. VEPESID [Suspect]
     Indication: LYMPHOMA
     Route: 042
     Dates: start: 20010501
  2. CYCLOPHOSPHAMIDE [Concomitant]
  3. ARA-C [Concomitant]
  4. DEXAMETHASONE [Concomitant]

REACTIONS (2)
  - LYMPHOMA [None]
  - SMALL INTESTINAL STENOSIS [None]
